FAERS Safety Report 17177722 (Version 1)
Quarter: 2019Q4

REPORT INFORMATION
  Report Type: Report from Study
  Country: CO (occurrence: CO)
  Receive Date: 20191219
  Receipt Date: 20191219
  Transmission Date: 20200122
  Serious: Yes (Other)
  Sender: FDA-Public Use
  Company Number: CO-VIFOR (INTERNATIONAL) INC.-VIT-2019-16851

PATIENT
  Age: 30 Year
  Sex: Male

DRUGS (1)
  1. MIRCERA [Suspect]
     Active Substance: METHOXY POLYETHYLENE GLYCOL-EPOETIN BETA
     Indication: PRODUCT USED FOR UNKNOWN INDICATION
     Route: 065

REACTIONS (14)
  - Insomnia [Unknown]
  - Restlessness [Unknown]
  - Renal pain [Unknown]
  - Pain [Unknown]
  - Bladder dilatation [Unknown]
  - Swelling [Unknown]
  - Thirst [Unknown]
  - Cardiovascular disorder [Unknown]
  - Accident [Unknown]
  - Stress [Unknown]
  - Depression [Unknown]
  - Discomfort [Unknown]
  - Urinary retention [Unknown]
  - Ill-defined disorder [Unknown]
